FAERS Safety Report 22105181 (Version 4)
Quarter: 2023Q2

REPORT INFORMATION
  Report Type: Other
  Country: DE (occurrence: DE)
  Receive Date: 20230316
  Receipt Date: 20230629
  Transmission Date: 20230722
  Serious: Yes (Other)
  Sender: FDA-Public Use
  Company Number: DE-CELLTRION INC.-2023DE005315

PATIENT

DRUGS (12)
  1. ADALIMUMAB [Suspect]
     Active Substance: ADALIMUMAB
     Indication: Crohn^s disease
     Dosage: UNK
     Dates: end: 2022
  2. ADALIMUMAB [Suspect]
     Active Substance: ADALIMUMAB
     Dosage: UNK
     Dates: end: 2022
  3. INFLIXIMAB [Suspect]
     Active Substance: INFLIXIMAB
     Indication: Product used for unknown indication
     Dosage: UNK
     Dates: end: 2022
  4. INFLIXIMAB [Suspect]
     Active Substance: INFLIXIMAB
     Dosage: START DATE 2022
     Dates: end: 2022
  5. INFLIXIMAB [Suspect]
     Active Substance: INFLIXIMAB
     Dosage: UNK
     Dates: end: 2022
  6. VEDOLIZUMAB [Suspect]
     Active Substance: VEDOLIZUMAB
     Indication: Product used for unknown indication
     Dosage: UNK
     Dates: end: 2022
  7. VEDOLIZUMAB [Suspect]
     Active Substance: VEDOLIZUMAB
     Dosage: START DATE 2022
     Dates: end: 2022
  8. VEDOLIZUMAB [Suspect]
     Active Substance: VEDOLIZUMAB
     Dosage: UNK
     Dates: end: 2022
  9. AZATHIOPRINE [Suspect]
     Active Substance: AZATHIOPRINE
     Indication: Product used for unknown indication
     Dosage: UNK
     Route: 065
     Dates: end: 2022
  10. AZATHIOPRINE [Suspect]
     Active Substance: AZATHIOPRINE
     Dosage: START DATE 2022
     Dates: end: 2022
  11. AZATHIOPRINE [Suspect]
     Active Substance: AZATHIOPRINE
     Dosage: UNK
     Dates: end: 2022
  12. USTEKINUMAB [Concomitant]
     Active Substance: USTEKINUMAB
     Indication: Product used for unknown indication
     Dosage: EVERY 8 WEEKS
     Dates: start: 2022

REACTIONS (6)
  - Mechanical ileus [Unknown]
  - Respiratory failure [Unknown]
  - Hypersensitivity pneumonitis [Unknown]
  - Pneumonia influenzal [Unknown]
  - Lung infiltration [Unknown]
  - Small intestine operation [Unknown]

NARRATIVE: CASE EVENT DATE: 20220401
